FAERS Safety Report 13042579 (Version 1)
Quarter: 2016Q4

REPORT INFORMATION
  Report Type: Spontaneous
  Country: GB (occurrence: GB)
  Receive Date: 20161219
  Receipt Date: 20161219
  Transmission Date: 20170207
  Serious: Yes (Other)
  Sender: FDA-Public Use
  Company Number: GB-BAXALTA-2016BLT009318

PATIENT
  Sex: Male

DRUGS (1)
  1. SUBCUVIA [Suspect]
     Active Substance: HUMAN IMMUNOGLOBULIN G
     Indication: PRODUCT USED FOR UNKNOWN INDICATION
     Dosage: 5 ML, 1X A WEEK
     Route: 058
     Dates: start: 20151218

REACTIONS (2)
  - Infection [Unknown]
  - Inappropriate schedule of drug administration [Unknown]
